FAERS Safety Report 19711037 (Version 3)
Quarter: 2021Q3

REPORT INFORMATION
  Report Type: Spontaneous
  Country: US (occurrence: US)
  Receive Date: 20210816
  Receipt Date: 20210830
  Transmission Date: 20211014
  Serious: Yes (Other)
  Sender: FDA-Public Use
  Company Number: US-ORGANON-O2108USA001064

PATIENT
  Age: 43 Year
  Sex: Female
  Weight: 63.49 kg

DRUGS (3)
  1. NEXPLANON [Suspect]
     Active Substance: ETONOGESTREL
     Indication: CONTRACEPTION
     Dosage: 1 IMPLANT (68MG) IN LEFT ARM EVERY 3 YEARS
     Route: 059
     Dates: start: 2019, end: 20210806
  2. ESCITALOPRAM [Concomitant]
     Active Substance: ESCITALOPRAM OXALATE
     Dosage: UNK
  3. TRAZODONE [Concomitant]
     Active Substance: TRAZODONE HYDROCHLORIDE
     Dosage: UNK

REACTIONS (7)
  - Loss of consciousness [Recovered/Resolved]
  - Implant site pain [Recovering/Resolving]
  - Complication of device removal [Recovered/Resolved]
  - Pain in extremity [Recovering/Resolving]
  - Implant site bruising [Not Recovered/Not Resolved]
  - Presyncope [Recovered/Resolved]
  - Adverse event [Not Recovered/Not Resolved]

NARRATIVE: CASE EVENT DATE: 202108
